FAERS Safety Report 17966030 (Version 4)
Quarter: 2020Q3

REPORT INFORMATION
  Report Type: Report from Study
  Country: US (occurrence: US)
  Receive Date: 20200701
  Receipt Date: 20200825
  Transmission Date: 20201103
  Serious: Yes (Death, Hospitalization, Other)
  Sender: FDA-Public Use
  Company Number: US-GILEAD-2020-0476446

PATIENT
  Age: 76 Year
  Sex: Female

DRUGS (20)
  1. VITAMIN B12 [Concomitant]
     Active Substance: CYANOCOBALAMIN
  2. NYSTATIN. [Concomitant]
     Active Substance: NYSTATIN
  3. LEVOTHYROXINE. [Concomitant]
     Active Substance: LEVOTHYROXINE
  4. IPRATROPIUM BROMIDE. [Concomitant]
     Active Substance: IPRATROPIUM BROMIDE
  5. CALCIUM [Concomitant]
     Active Substance: CALCIUM
  6. OCUVITE [ASCORBIC ACID;RETINOL;TOCOPHEROL] [Concomitant]
  7. TYLENOL [Concomitant]
     Active Substance: ACETAMINOPHEN
  8. IRON [Concomitant]
     Active Substance: IRON
  9. FUROSEMIDE. [Concomitant]
     Active Substance: FUROSEMIDE
  10. WARFARIN [Concomitant]
     Active Substance: WARFARIN
  11. LOVENOX [LEVOFLOXACIN] [Concomitant]
     Active Substance: LEVOFLOXACIN
  12. SILDENAFIL CITRATE. [Concomitant]
     Active Substance: SILDENAFIL CITRATE
  13. ASPIRINE [Concomitant]
     Active Substance: ASPIRIN
  14. ATORVASTATIN [Concomitant]
     Active Substance: ATORVASTATIN
  15. AMBRISENTAN [Suspect]
     Active Substance: AMBRISENTAN
     Indication: PULMONARY ARTERIAL HYPERTENSION
     Dosage: 10 MG, QD
     Route: 065
  16. LAXATIVE [BISACODYL] [Concomitant]
     Active Substance: BISACODYL
  17. MAGNESIUM [Concomitant]
     Active Substance: MAGNESIUM
  18. KLOR?CON [Concomitant]
     Active Substance: POTASSIUM CHLORIDE
  19. SOTALOL. [Concomitant]
     Active Substance: SOTALOL
  20. DILTIAZEM. [Concomitant]
     Active Substance: DILTIAZEM

REACTIONS (8)
  - Rectal haemorrhage [Recovered/Resolved]
  - Ovarian neoplasm [Unknown]
  - Fluid retention [Unknown]
  - Anaemia [Recovered/Resolved]
  - Haemorrhoids [Unknown]
  - General physical health deterioration [Not Recovered/Not Resolved]
  - Death [Fatal]
  - Fatigue [Unknown]
